FAERS Safety Report 15113411 (Version 3)
Quarter: 2018Q4

REPORT INFORMATION
  Report Type: Report from Study
  Country: AU (occurrence: AU)
  Receive Date: 20180706
  Receipt Date: 20181210
  Transmission Date: 20190204
  Serious: Yes (Hospitalization, Other)
  Sender: FDA-Public Use
  Company Number: AU-REGENERON PHARMACEUTICALS, INC.-2018-28353

PATIENT

DRUGS (2)
  1. EYLEA [Suspect]
     Active Substance: AFLIBERCEPT
     Indication: DIABETIC RETINAL OEDEMA
     Dosage: 1 DF, Q4WK
     Route: 031
     Dates: start: 20180419
  2. EYLEA [Suspect]
     Active Substance: AFLIBERCEPT
     Dosage: UNK, 5 WEEKLY
     Route: 031

REACTIONS (6)
  - Nausea [Not Recovered/Not Resolved]
  - Balance disorder [Unknown]
  - Dizziness [Unknown]
  - Optic nerve injury [Unknown]
  - Head injury [Unknown]
  - Fall [Unknown]
